FAERS Safety Report 4488951-3 (Version None)
Quarter: 2004Q4

REPORT INFORMATION
  Report Type: 
  Country: None (occurrence: None)
  Receive Date: 20041029
  Receipt Date: 20041014
  Transmission Date: 20050328
  Serious: Yes (Other)
  Sender: FDA-Public Use
  Company Number: 200413282JP

PATIENT
  Age: 65 Year
  Sex: Female
  Weight: 34.3 kg

DRUGS (13)
  1. ARAVA [Suspect]
     Indication: RHEUMATOID ARTHRITIS
     Route: 048
     Dates: start: 20031004, end: 20041006
  2. RHEUMATREX [Concomitant]
     Indication: RHEUMATOID ARTHRITIS
     Dosage: DOSE: 8MG/WEEK
     Route: 048
     Dates: start: 20030425, end: 20030928
  3. FOLIAMIN [Concomitant]
     Indication: ADVERSE DRUG REACTION
     Dosage: DOSE: 5MG/WEEK
     Route: 048
     Dates: start: 20030425, end: 20030928
  4. PREDNISOLONE [Concomitant]
     Indication: RHEUMATOID ARTHRITIS
     Route: 048
     Dates: start: 20030418, end: 20031111
  5. LIMETHASON [Concomitant]
     Indication: RHEUMATOID ARTHRITIS
     Dosage: DOSE: 4MG/2W
     Route: 042
     Dates: start: 20030808, end: 20030919
  6. FOSAMAC TABLETS [Concomitant]
     Indication: OSTEOPOROSIS
     Route: 048
     Dates: start: 20030425
  7. LOBU [Concomitant]
     Indication: RHEUMATOID ARTHRITIS
     Route: 048
     Dates: start: 20030418
  8. AZULENE/GLUTAMINE GRANULES [Concomitant]
     Indication: RHEUMATOID ARTHRITIS
     Route: 048
     Dates: start: 20030418
  9. BREDININ [Concomitant]
     Indication: RHEUMATOID ARTHRITIS
     Route: 048
     Dates: start: 20030613, end: 20031003
  10. STRONG NEO-MINOPHAGEN C [Concomitant]
     Indication: RASH
     Dosage: DOSE: 1 A/DAY
     Route: 041
  11. POLARAMIN [Concomitant]
     Indication: RASH
     Dosage: DOSE: 2 CAPS/DAY
     Route: 048
     Dates: start: 20031013, end: 20031015
  12. MYSER [Concomitant]
     Indication: RASH
     Dosage: DOSE: 2 TUBES
     Dates: start: 20031013
  13. QUESTRAN [Concomitant]
     Indication: RASH
     Dosage: DOSE: UNK
     Route: 048
     Dates: start: 20031014, end: 20031030

REACTIONS (10)
  - ARTHRALGIA [None]
  - BLOOD ALBUMIN DECREASED [None]
  - BLOOD PRESSURE DIASTOLIC DECREASED [None]
  - C-REACTIVE PROTEIN INCREASED [None]
  - CONDITION AGGRAVATED [None]
  - JOINT SWELLING [None]
  - PRURITUS [None]
  - RASH GENERALISED [None]
  - RASH PAPULAR [None]
  - RHEUMATOID ARTHRITIS [None]
